FAERS Safety Report 12234562 (Version 4)
Quarter: 2017Q1

REPORT INFORMATION
  Report Type: Report from Study
  Country: US (occurrence: US)
  Receive Date: 20160404
  Receipt Date: 20170324
  Transmission Date: 20170428
  Serious: Yes (Death)
  Sender: FDA-Public Use
  Company Number: PHEH2016US008071

PATIENT
  Age: 81 Year
  Sex: Female

DRUGS (3)
  1. ENTRESTO [Suspect]
     Active Substance: SACUBITRIL\VALSARTAN
     Indication: CARDIAC FAILURE CONGESTIVE
     Dosage: 24/26 MG, QD
     Route: 048
     Dates: start: 20150831
  2. ENTRESTO [Suspect]
     Active Substance: SACUBITRIL\VALSARTAN
     Dosage: INCREASED DOSE
     Route: 048
  3. ENTRESTO [Suspect]
     Active Substance: SACUBITRIL\VALSARTAN
     Dosage: 50 MG, QD
     Route: 048

REACTIONS (10)
  - Peripheral arthritis [Unknown]
  - Malaise [Unknown]
  - Pain [Unknown]
  - Dizziness [Unknown]
  - Therapeutic response unexpected [Unknown]
  - Prescribed underdose [Unknown]
  - Death [Fatal]
  - Gastroenteritis viral [Unknown]
  - Weight increased [Unknown]
  - Hypotension [Unknown]

NARRATIVE: CASE EVENT DATE: 20170228
